FAERS Safety Report 7880360-X (Version None)
Quarter: 2011Q4

REPORT INFORMATION
  Report Type: 
  Country: None (occurrence: None)
  Receive Date: 20111101
  Receipt Date: 20111025
  Transmission Date: 20120403
  Serious: Yes (Hospitalization)
  Sender: FDA-Public Use
  Company Number: GXBR2011US03092

PATIENT
  Sex: Male
  Weight: 95.238 kg

DRUGS (9)
  1. BENAZEPRIL HYDROCHLORIDE [Suspect]
     Indication: HYPERTENSION
     Dosage: 40 MG, QD
     Route: 048
     Dates: start: 20090101, end: 20110701
  2. METOPROLOL TARTRATE [Concomitant]
     Indication: HYPERTENSION
     Dosage: 25 MG, BID
  3. GLIMEPIRIDE [Concomitant]
     Indication: DIABETES MELLITUS
     Dosage: 4 MG, QD
     Dates: start: 20000101
  4. LEVOTHYROXINE SODIUM [Concomitant]
     Indication: HYPOTHYROIDISM
     Dosage: 137 UG, QD
  5. MULTIVITAMIN PREPARATIONS WITH OR W/O MINERAL [Concomitant]
     Indication: SUPPLEMENTATION THERAPY
     Dosage: UNK DF, UNK
  6. METFORMIN HCL [Concomitant]
     Indication: DIABETES MELLITUS
     Dosage: 1000 MG, BID
  7. ASPIRIN [Concomitant]
     Dosage: 325 MG, QD
  8. OXYGEN [Concomitant]
     Indication: OXYGEN SUPPLEMENTATION
     Dosage: UNK DF, UNK
     Dates: start: 20070101
  9. ACIDOPHILUS ^ZYMA^ [Concomitant]
     Indication: ROSACEA
     Dosage: UNK DF, UNK

REACTIONS (4)
  - BLOOD GLUCOSE INCREASED [None]
  - CEREBROVASCULAR ACCIDENT [None]
  - COUGH [None]
  - PURPURA [None]
